FAERS Safety Report 7690612-4 (Version None)
Quarter: 2011Q3

REPORT INFORMATION
  Report Type: 
  Country: None (occurrence: None)
  Receive Date: 20110812
  Receipt Date: 20110809
  Transmission Date: 20111222
  Serious: Yes (Life-Threatening, Disabling, Other)
  Sender: FDA-Public Use
  Company Number: 2011SP023955

PATIENT
  Age: 20 Year
  Sex: Female
  Weight: 86.1834 kg

DRUGS (10)
  1. ACETAMINOPHEN [Concomitant]
  2. BENZOCAINE [Concomitant]
  3. WITCH HAZEL [Concomitant]
  4. LABETALOL HCL [Concomitant]
  5. HYDROCORTISONE [Concomitant]
  6. IMPLANON [Suspect]
     Indication: CONTRACEPTION
     Dosage: 1 DF;  ; SBDE
     Route: 059
     Dates: start: 20110516, end: 20110518
  7. PRENATAL [Concomitant]
  8. COLACE [Concomitant]
  9. IBUPROFEN [Concomitant]
  10. FERROUS SULFATE TAB [Concomitant]

REACTIONS (2)
  - DEVICE DISLOCATION [None]
  - DRUG HYPERSENSITIVITY [None]
